FAERS Safety Report 9202733 (Version 1)
Quarter: 2013Q2

REPORT INFORMATION
  Report Type: Spontaneous
  Country: ES (occurrence: ES)
  Receive Date: 20130401
  Receipt Date: 20130401
  Transmission Date: 20140414
  Serious: Yes (Hospitalization)
  Sender: FDA-Public Use
  Company Number: ES-MYLANLABS-2013S1006202

PATIENT
  Sex: Female

DRUGS (6)
  1. TRAMADOL [Suspect]
     Indication: BONE PAIN
     Route: 065
  2. FENTANYL TRANSDERMAL SYSTEM [Suspect]
     Indication: BONE PAIN
     Route: 062
  3. BUPRENORPHINE [Suspect]
     Indication: BONE PAIN
     Route: 062
  4. MORPHINE [Suspect]
     Indication: BONE PAIN
     Route: 048
  5. MORPHINE [Suspect]
     Indication: BONE PAIN
     Dosage: APPROXIMATELY 450MG/24H
     Route: 058
  6. OXYCODONE [Suspect]
     Indication: BONE PAIN
     Dosage: APPROXIMATELY 320MG/24H
     Route: 048

REACTIONS (2)
  - Constipation [Recovering/Resolving]
  - Gastrointestinal hypomotility [Recovering/Resolving]
